FAERS Safety Report 8116312-4 (Version None)
Quarter: 2012Q1

REPORT INFORMATION
  Report Type: 
  Country: None (occurrence: None)
  Receive Date: 20120206
  Receipt Date: 20120202
  Transmission Date: 20120608
  Serious: Yes (Hospitalization)
  Sender: FDA-Public Use
  Company Number: US-GLAXOSMITHKLINE-A0892645A

PATIENT
  Age: 48 Year
  Sex: Female
  Weight: 71.8 kg

DRUGS (2)
  1. GLIPIZIDE [Concomitant]
     Dates: start: 20060701
  2. AVANDIA [Suspect]
     Indication: DIABETES MELLITUS
     Dosage: 4MG PER DAY
     Route: 048
     Dates: start: 20060718, end: 20090615

REACTIONS (4)
  - CARDIOMYOPATHY [None]
  - CORONARY ARTERY BYPASS [None]
  - ACUTE MYOCARDIAL INFARCTION [None]
  - CARDIAC FAILURE CONGESTIVE [None]
